FAERS Safety Report 7148474-X (Version None)
Quarter: 2010Q4

REPORT INFORMATION
  Report Type: 
  Country: None (occurrence: None)
  Receive Date: 20101209
  Receipt Date: 20101206
  Transmission Date: 20110411
  Serious: Yes (Death)
  Sender: FDA-Public Use
  Company Number: PHHY2010BR82663

PATIENT
  Sex: Male

DRUGS (3)
  1. DIOVAN [Suspect]
     Dosage: COATED TABLET, 80 MG
  2. DIOVAN HCT [Suspect]
     Dosage: COATED TABLET, 160/12.5 MG
  3. DIOVAN HCT [Suspect]
     Dosage: COATED TABLET, 80/12.5 MG

REACTIONS (1)
  - DEATH [None]
